FAERS Safety Report 10532973 (Version 1)
Quarter: 2014Q4

REPORT INFORMATION
  Report Type: Spontaneous
  Country: CH (occurrence: CH)
  Receive Date: 20141022
  Receipt Date: 20141022
  Transmission Date: 20150529
  Serious: Yes (Death, Hospitalization)
  Sender: FDA-Public Use
  Company Number: CH-RANBAXY-2014RR-86932

PATIENT
  Age: 78 Year
  Sex: Male

DRUGS (5)
  1. CEFAZOLIN [Suspect]
     Active Substance: CEFAZOLIN
     Indication: PRODUCT USED FOR UNKNOWN INDICATION
     Dosage: 2 G, SINGLE
     Route: 042
  2. METAMIZOLE [Suspect]
     Active Substance: METAMIZOLE
     Indication: ANALGESIC THERAPY
     Dosage: UNK
     Route: 065
  3. PARACETAMOL [Suspect]
     Active Substance: ACETAMINOPHEN
     Indication: ANALGESIC THERAPY
     Dosage: UP TO 4 G/DAY
     Route: 065
  4. DALTEPARIN [Suspect]
     Active Substance: DALTEPARIN
     Indication: THROMBOSIS PROPHYLAXIS
     Dosage: UNK
     Route: 065
  5. XARELTO [Suspect]
     Active Substance: RIVAROXABAN
     Indication: THROMBOSIS PROPHYLAXIS
     Dosage: 10 MG, DAILY
     Route: 065

REACTIONS (2)
  - Drug-induced liver injury [Fatal]
  - Ileus paralytic [Fatal]
